FAERS Safety Report 5402256-5 (Version None)
Quarter: 2007Q3

REPORT INFORMATION
  Report Type: 
  Country: None (occurrence: None)
  Receive Date: 20070801
  Receipt Date: 20070723
  Transmission Date: 20080115
  Serious: Yes (Other)
  Sender: FDA-Public Use
  Company Number: DE-AMGEN-UK227186

PATIENT
  Sex: Male

DRUGS (31)
  1. ARANESP [Suspect]
     Indication: RENAL FAILURE CHRONIC
     Route: 042
     Dates: start: 20061021
  2. VITARENAL [Concomitant]
     Dates: start: 20061128
  3. VFEND [Concomitant]
     Dates: start: 20061128, end: 20070331
  4. ALBUTEROL [Concomitant]
     Dates: start: 20060331
  5. PANTOPRAZOLE SODIUM [Concomitant]
     Dates: start: 20061128
  6. NOVALGIN [Concomitant]
     Dates: start: 20061128
  7. MARCUMAR [Concomitant]
     Dates: start: 20060331
  8. LANTUS [Concomitant]
     Dates: start: 20060331
  9. INSULIN [Concomitant]
     Dates: start: 20060428
  10. DIGIMERCK [Concomitant]
     Dates: start: 20061128
  11. CLINDAMYCIN HCL [Concomitant]
     Dates: start: 20070106, end: 20070206
  12. CIPROFLOXACIN [Concomitant]
     Dates: start: 20061214, end: 20070206
  13. CALCIUM ACETATE [Concomitant]
     Dates: start: 20060808
  14. METOPROLOL SUCCINATE [Concomitant]
     Dates: start: 20061128
  15. AMPHO MORONAL [Concomitant]
     Dates: start: 20070111
  16. ACYCLOVIR [Concomitant]
     Dates: start: 20060331
  17. FERRLECIT [Concomitant]
     Dates: start: 20060331, end: 20070321
  18. IRON DEXTRAN [Concomitant]
     Dates: start: 20070321
  19. SODIUM BICARBONATE [Concomitant]
     Dates: start: 20060331
  20. COLECALCIFEROL [Concomitant]
     Dates: start: 20070426
  21. FOLIC ACID [Concomitant]
     Dates: start: 20061128
  22. COTRIM [Concomitant]
  23. VALORON [Concomitant]
     Dates: start: 20060720, end: 20061128
  24. DILTIAZEM [Concomitant]
     Dates: start: 20060331, end: 20061128
  25. NEBILET [Concomitant]
     Dates: start: 20060331, end: 20061128
  26. NEXIUM [Concomitant]
     Dates: start: 20060331, end: 20061128
  27. ROCALTROL [Concomitant]
     Dates: start: 20060331, end: 20061128
  28. SOTALOL HCL [Concomitant]
     Dates: start: 20061128, end: 20061223
  29. UNACID [Concomitant]
     Dates: start: 20061128, end: 20061223
  30. TRAMADOL HCL [Concomitant]
     Dates: start: 20061128, end: 20061207
  31. BLOOD, WHOLE [Concomitant]

REACTIONS (1)
  - ANAEMIA [None]
